FAERS Safety Report 10634695 (Version 2)
Quarter: 2014Q4

REPORT INFORMATION
  Report Type: Report from Study
  Country: US (occurrence: US)
  Receive Date: 20141205
  Receipt Date: 20141205
  Transmission Date: 20150529
  Serious: Yes (Death, Life-Threatening, Hospitalization, Other)
  Sender: FDA-Public Use
  Company Number: US-ASTELLAS-2014EU014022

PATIENT
  Age: 65 Year
  Sex: Female

DRUGS (37)
  1. BENADRYL [Concomitant]
     Active Substance: DIPHENHYDRAMINE HYDROCHLORIDE
     Indication: ANXIETY
     Dosage: 25 UNK, UNK
     Route: 042
     Dates: start: 20140925
  2. ACETAMINOPHEN. [Concomitant]
     Active Substance: ACETAMINOPHEN
     Indication: MUSCULOSKELETAL PAIN
  3. ACETAMINOPHEN. [Concomitant]
     Active Substance: ACETAMINOPHEN
     Indication: FEBRILE NEUTROPENIA
  4. ZOVIRAX [Concomitant]
     Active Substance: ACYCLOVIR
     Indication: ANTIVIRAL PROPHYLAXIS
     Dosage: 400-800-MG-BID
     Route: 048
     Dates: start: 20140914
  5. ZOVIRAX [Concomitant]
     Active Substance: ACYCLOVIR
     Indication: ANTIVIRAL PROPHYLAXIS
     Dosage: 400-800-MG-BID
     Route: 048
     Dates: start: 20140914
  6. ACETAMINOPHEN. [Concomitant]
     Active Substance: ACETAMINOPHEN
     Indication: FEBRILE NEUTROPENIA
  7. ACETAMINOPHEN. [Concomitant]
     Active Substance: ACETAMINOPHEN
     Indication: PREMEDICATION
  8. SODIUM CHLORIDE. [Concomitant]
     Active Substance: SODIUM CHLORIDE
     Indication: SUPPORTIVE CARE
     Dosage: 250-ML-PRN
     Route: 042
     Dates: start: 20140914
  9. XANAX [Concomitant]
     Active Substance: ALPRAZOLAM
     Indication: ANXIETY
     Dosage: 0.25-MG-PRN
     Route: 048
     Dates: start: 20140927
  10. DAPSONE. [Concomitant]
     Active Substance: DAPSONE
     Indication: ANTIFUNGAL PROPHYLAXIS
     Dosage: 100-MG-QD
     Route: 048
     Dates: start: 20141010
  11. MAGNESIUM SULFATE. [Concomitant]
     Active Substance: MAGNESIUM SULFATE
     Indication: HYPOMAGNESAEMIA
     Dosage: 1-4-G-PRN
     Route: 042
     Dates: start: 20140919
  12. VANCO [Concomitant]
     Active Substance: VANCOMYCIN
     Indication: CLOSTRIDIUM DIFFICILE INFECTION
     Dosage: 125-MG-QID
     Route: 048
     Dates: start: 20140929, end: 20141018
  13. BECLOMETHASONE DIPROPIONATE        /00212602/ [Concomitant]
     Indication: DIARRHOEA
     Dosage: 2 MG, QID
     Route: 048
     Dates: start: 20141009
  14. ENTOCORT EC [Concomitant]
     Active Substance: BUDESONIDE
     Indication: ACUTE GRAFT VERSUS HOST DISEASE IN INTESTINE
  15. CORDARONE [Concomitant]
     Active Substance: AMIODARONE HYDROCHLORIDE
     Indication: ATRIAL FIBRILLATION
     Dosage: 200-MG-QD
     Route: 048
     Dates: start: 20141014, end: 20141022
  16. BLINDED FIDAXOMICIN [Suspect]
     Active Substance: FIDAXOMICIN
     Indication: PROPHYLAXIS
     Dosage: 1 TABLET, QD
     Route: 048
     Dates: start: 20140912, end: 20140929
  17. PROGRAF [Suspect]
     Active Substance: TACROLIMUS\TACROLIMUS ANHYDROUS
     Indication: PROPHYLAXIS AGAINST GRAFT VERSUS HOST DISEASE
     Dosage: 1.5-4-MG-BID
     Route: 048
     Dates: start: 20141004, end: 20141025
  18. LASIX [Concomitant]
     Active Substance: FUROSEMIDE
     Indication: CARDIAC FAILURE CONGESTIVE
  19. SOLU-MEDROL [Concomitant]
     Active Substance: METHYLPREDNISOLONE SODIUM SUCCINATE
     Indication: PREMEDICATION
     Dosage: 62.5-MG-PRN
     Route: 042
     Dates: start: 20140819
  20. ACETAMINOPHEN. [Concomitant]
     Active Substance: ACETAMINOPHEN
     Indication: PREMEDICATION
     Dosage: 650-MG-PRN
     Route: 048
     Dates: start: 20140819
  21. SYNTHROID [Concomitant]
     Active Substance: LEVOTHYROXINE SODIUM
     Indication: HYPOTHYROIDISM
     Dosage: 75-MCG-QD
     Route: 048
     Dates: start: 19940601
  22. BECLOMETHASONE DIPROPIONATE        /00212602/ [Concomitant]
     Indication: ACUTE GRAFT VERSUS HOST DISEASE IN INTESTINE
  23. ENTOCORT EC [Concomitant]
     Active Substance: BUDESONIDE
     Indication: DIARRHOEA
     Dosage: 3-MG-BID
     Route: 048
     Dates: start: 20141009
  24. BENADRYL [Concomitant]
     Active Substance: DIPHENHYDRAMINE HYDROCHLORIDE
     Indication: PREMEDICATION
     Dosage: 25-MG-PRN
     Route: 048
     Dates: start: 20140819
  25. LASIX [Concomitant]
     Active Substance: FUROSEMIDE
     Indication: OEDEMA PERIPHERAL
     Dosage: 20-100-MG-PRN
     Route: 042
     Dates: start: 20140913
  26. LASIX [Concomitant]
     Active Substance: FUROSEMIDE
     Indication: HYPERVOLAEMIA
  27. LASIX [Concomitant]
     Active Substance: FUROSEMIDE
     Indication: DYSPNOEA
  28. ACETAMINOPHEN. [Concomitant]
     Active Substance: ACETAMINOPHEN
     Indication: MUSCULOSKELETAL PAIN
  29. LASIX [Concomitant]
     Active Substance: FUROSEMIDE
     Indication: ACUTE RESPIRATORY FAILURE
  30. LIDODERM [Concomitant]
     Active Substance: LIDOCAINE
     Indication: BACK PAIN
     Dosage: 1-PATCH-Q12H
     Route: 062
     Dates: start: 20141011, end: 20141021
  31. POTASSIUM CHLORIDE. [Concomitant]
     Active Substance: POTASSIUM CHLORIDE
     Indication: HYPOKALAEMIA
     Dosage: 10-MEQ-PRN
     Route: 042
     Dates: start: 20130930
  32. NOVOLOG [Concomitant]
     Active Substance: INSULIN ASPART
     Indication: HYPERGLYCAEMIA
  33. BENADRYL [Concomitant]
     Active Substance: DIPHENHYDRAMINE HYDROCHLORIDE
     Indication: PREMEDICATION
     Route: 048
     Dates: start: 20140819
  34. BENADRYL [Concomitant]
     Active Substance: DIPHENHYDRAMINE HYDROCHLORIDE
     Indication: ANXIETY
     Route: 042
     Dates: start: 20140925
  35. DIFLUCAN [Concomitant]
     Active Substance: FLUCONAZOLE
     Indication: ANTIFUNGAL PROPHYLAXIS
     Dosage: 200-400-MG-QD
     Route: 048
     Dates: start: 20141006, end: 20141026
  36. ENTOCORT EC [Concomitant]
     Active Substance: BUDESONIDE
     Indication: ACUTE GRAFT VERSUS HOST DISEASE IN INTESTINE
  37. NOVOLOG [Concomitant]
     Active Substance: INSULIN ASPART
     Indication: HYPERGLYCAEMIA
     Dosage: 0-28-U-5 TIMES QD
     Route: 058
     Dates: start: 20141011

REACTIONS (4)
  - Cardiac failure congestive [Not Recovered/Not Resolved]
  - Acute respiratory failure [Fatal]
  - Graft versus host disease in lung [Not Recovered/Not Resolved]
  - Acute respiratory failure [Recovered/Resolved]

NARRATIVE: CASE EVENT DATE: 20141021
